FAERS Safety Report 17093878 (Version 2)
Quarter: 2020Q1

REPORT INFORMATION
  Report Type: Spontaneous
  Country: US (occurrence: US)
  Receive Date: 20191129
  Receipt Date: 20200313
  Transmission Date: 20200409
  Serious: No
  Sender: FDA-Public Use
  Company Number: US-TEVA-2019-US-1145136

PATIENT
  Age: 74 Year
  Sex: Female

DRUGS (2)
  1. LYRICA [Suspect]
     Active Substance: PREGABALIN
     Route: 065
  2. PREGABALIN TEVA [Suspect]
     Active Substance: PREGABALIN
     Route: 048
     Dates: start: 20191028, end: 20191121

REACTIONS (5)
  - Pain in extremity [Unknown]
  - Loss of personal independence in daily activities [Unknown]
  - Breakthrough pain [Recovered/Resolved]
  - Sleep disorder [Not Recovered/Not Resolved]
  - Drug ineffective [Unknown]

NARRATIVE: CASE EVENT DATE: 2019
